FAERS Safety Report 24747269 (Version 1)
Quarter: 2024Q4

REPORT INFORMATION
  Report Type: Report from Study
  Country: CA (occurrence: CA)
  Receive Date: 20241218
  Receipt Date: 20241218
  Transmission Date: 20250114
  Serious: Yes (Hospitalization)
  Sender: LEO PHARM
  Company Number: CA-LEO Pharma-375896

PATIENT
  Age: 47 Year
  Sex: Male

DRUGS (3)
  1. ADBRY [Suspect]
     Active Substance: TRALOKINUMAB-LDRM
     Indication: Dermatitis atopic
     Dosage: LOADING DOSE; FORMAT: 150 MG/ML. STOP DATE: HOLD FOR NOW.
     Route: 058
     Dates: start: 20240727
  2. ADBRY [Suspect]
     Active Substance: TRALOKINUMAB-LDRM
     Indication: Dermatitis atopic
     Dosage: MAINTENANCE DOSE. FORMAT: 150 MG/ML. STOP DATE: HOLD FOR NOW
     Route: 058
  3. METHOTREXATE [Concomitant]
     Active Substance: METHOTREXATE
     Indication: Product used for unknown indication
     Dosage: DOSE, FREQUENCY: ASKED BUT UNKNOWN; STOP DATE: ONGOING

REACTIONS (1)
  - Dermatitis atopic [Recovering/Resolving]
